FAERS Safety Report 9222095 (Version 3)
Quarter: 2013Q3

REPORT INFORMATION
  Report Type: Spontaneous
  Country: US (occurrence: US)
  Receive Date: 20130410
  Receipt Date: 20130827
  Transmission Date: 20140515
  Serious: Yes (Death, Hospitalization)
  Sender: FDA-Public Use
  Company Number: US-PFIZER INC-2013109274

PATIENT
  Age: 60 Year
  Sex: Female

DRUGS (8)
  1. REVATIO [Suspect]
     Indication: PULMONARY HYPERTENSION
     Dosage: 20 MG, 3X/DAY
     Route: 048
     Dates: start: 20130409
  2. ATROVENT HFA [Concomitant]
     Dosage: 17 MCG/ACTUATION INH HFAA - 2 PUFF 4 TIMES DAILY
     Route: 055
  3. PROVENTIL [Concomitant]
     Dosage: 90 MCG/ACTUATION INH HFAA - 2 PUFF EVERY 6 HOURS
     Route: 055
  4. VENTOLIN [Concomitant]
     Dosage: 90 MCG/ACTUATION INH HFAA - 2 PUFF EVERY 6 HOURS
     Route: 055
  5. ROXICODONE [Concomitant]
     Dosage: 5 MG EVERY 6 HOURS AS NEEDED
     Route: 048
  6. PRINIVIL [Concomitant]
     Dosage: 2.5 MG, 2X/DAY
     Route: 048
  7. COREG [Concomitant]
     Dosage: 12.5 MG, 2X/DAY
     Route: 048
  8. COUMADIN [Concomitant]
     Dosage: 6 MG, 1X/DAY
     Route: 048

REACTIONS (2)
  - Brain death [Fatal]
  - Dyspnoea [Unknown]
